FAERS Safety Report 17156163 (Version 2)
Quarter: 2019Q4

REPORT INFORMATION
  Report Type: Spontaneous
  Country: US (occurrence: US)
  Receive Date: 20191216
  Receipt Date: 20191226
  Transmission Date: 20200122
  Serious: Yes (Hospitalization, Other)
  Sender: FDA-Public Use
  Company Number: US-AUROBINDO-AUR-APL-2019-104364

PATIENT
  Age: 77 Year
  Sex: Male

DRUGS (1)
  1. AMIODARONE HYDROCHLORIDE. [Suspect]
     Active Substance: AMIODARONE HYDROCHLORIDE
     Indication: PRODUCT USED FOR UNKNOWN INDICATION
     Dosage: 150 MILLIGRAM (BOLUS)
     Route: 065

REACTIONS (4)
  - Skin discolouration [Unknown]
  - Argyria [Recovered/Resolved]
  - Condition aggravated [Recovered/Resolved]
  - Tachycardia [Recovered/Resolved]
